FAERS Safety Report 5838625-9 (Version None)
Quarter: 2008Q3

REPORT INFORMATION
  Report Type: 
  Country: None (occurrence: None)
  Receive Date: 20080808
  Receipt Date: 20080616
  Transmission Date: 20090109
  Serious: No
  Sender: FDA-Public Use
  Company Number: A0733147A

PATIENT
  Age: 59 Year
  Sex: Female

DRUGS (5)
  1. ALTABAX [Suspect]
     Indication: IMPETIGO
     Dosage: 1APP TWICE PER DAY
     Route: 061
     Dates: start: 20080613, end: 20080613
  2. LAMICTAL [Concomitant]
  3. EFFEXOR [Concomitant]
  4. PRIMIDONE [Concomitant]
  5. KLONOPIN [Concomitant]

REACTIONS (4)
  - APPLICATION SITE ERYTHEMA [None]
  - APPLICATION SITE PAIN [None]
  - APPLICATION SITE SCAB [None]
  - WOUND [None]
